FAERS Safety Report 20808537 (Version 1)
Quarter: 2022Q2

REPORT INFORMATION
  Report Type: Spontaneous
  Country: IT (occurrence: IT)
  Receive Date: 20220510
  Receipt Date: 20220510
  Transmission Date: 20220721
  Serious: Yes (Other)
  Sender: FDA-Public Use
  Company Number: None

PATIENT
  Age: 16 Year
  Sex: Male
  Weight: 49 kg

DRUGS (2)
  1. METHYLPREDNISOLONE [Suspect]
     Active Substance: METHYLPREDNISOLONE
     Indication: Leukaemia
     Route: 040
  2. DEXAMETHASONE [Suspect]
     Active Substance: DEXAMETHASONE
     Indication: Leukaemia
     Route: 048
     Dates: start: 20220316, end: 20220415

REACTIONS (4)
  - Hyperglycaemia [Unknown]
  - Sarcopenia [Unknown]
  - Hyperphagia [Unknown]
  - Cushingoid [Unknown]

NARRATIVE: CASE EVENT DATE: 20220321
